FAERS Safety Report 7500097-6 (Version None)
Quarter: 2011Q2

REPORT INFORMATION
  Report Type: 
  Country: None (occurrence: None)
  Receive Date: 20110524
  Receipt Date: 20110317
  Transmission Date: 20111010
  Serious: No
  Sender: FDA-Public Use
  Company Number: US-NOVEN-11US002027

PATIENT
  Sex: Female

DRUGS (1)
  1. DAYTRANA [Suspect]
     Indication: ATTENTION DEFICIT/HYPERACTIVITY DISORDER
     Dosage: 10 MG, 9 HRS, QD
     Route: 062
     Dates: start: 20110301

REACTIONS (9)
  - INCORRECT DRUG ADMINISTRATION DURATION [None]
  - DECREASED APPETITE [None]
  - OFF LABEL USE [None]
  - DRUG DOSE OMISSION [None]
  - PRODUCT QUALITY ISSUE [None]
  - APPLICATION SITE ERYTHEMA [None]
  - APPLICATION SITE EROSION [None]
  - APPLICATION SITE PAIN [None]
  - DRUG PRESCRIBING ERROR [None]
